FAERS Safety Report 9730415 (Version 4)
Quarter: 2014Q1

REPORT INFORMATION
  Report Type: Spontaneous
  Country: JP (occurrence: JP)
  Receive Date: 20131202
  Receipt Date: 20140218
  Transmission Date: 20141002
  Serious: Yes (Hospitalization)
  Sender: FDA-Public Use
  Company Number: JP-NOVOPROD-393622

PATIENT
  Age: 61 Year
  Sex: Male
  Weight: 74 kg

DRUGS (5)
  1. VICTOZA HIKACHU INJECTION [Suspect]
     Indication: TYPE 2 DIABETES MELLITUS
     Dosage: 0.9 MG, QD
     Route: 058
     Dates: start: 20131014
  2. AMARYL [Concomitant]
     Indication: TYPE 2 DIABETES MELLITUS
     Dosage: 1 MG, QD
     Route: 048
  3. VESICARE [Concomitant]
     Dosage: UNK
     Route: 048
  4. HARNAL [Concomitant]
     Dosage: UNK
     Route: 048
  5. TAKEPRON [Concomitant]
     Dosage: UNK
     Route: 048

REACTIONS (2)
  - Depression [Recovering/Resolving]
  - Diabetes mellitus inadequate control [Recovering/Resolving]
